FAERS Safety Report 16872439 (Version 1)
Quarter: 2019Q4

REPORT INFORMATION
  Report Type: Spontaneous
  Country: US (occurrence: US)
  Receive Date: 20191001
  Receipt Date: 20191001
  Transmission Date: 20200122
  Serious: Yes (Hospitalization, Other)
  Sender: FDA-Public Use
  Company Number: US-MICRO LABS LIMITED-ML2019-02529

PATIENT
  Age: 37 Year
  Sex: Female

DRUGS (4)
  1. ACETAMINOPHEN. [Suspect]
     Active Substance: ACETAMINOPHEN
  2. KETOROLAC [Suspect]
     Active Substance: KETOROLAC TROMETHAMINE
     Dosage: 60 MG OF INTRAVENOUS KETOROLAC TROMETHAMINE.
     Route: 042
  3. IBUPROFEN. [Suspect]
     Active Substance: IBUPROFEN
  4. IBUPROFEN. [Suspect]
     Active Substance: IBUPROFEN
     Dosage: 600 MG EVERY 6 HRS AS NEEDED.

REACTIONS (3)
  - Renal ischaemia [Recovered/Resolved]
  - Acute kidney injury [Recovered/Resolved]
  - Renal infarct [Recovered/Resolved]
